FAERS Safety Report 5484652-3 (Version None)
Quarter: 2007Q4

REPORT INFORMATION
  Report Type: 
  Country: None (occurrence: None)
  Receive Date: 20071012
  Receipt Date: 20071002
  Transmission Date: 20080405
  Serious: Yes (Other)
  Sender: FDA-Public Use
  Company Number: US-PFIZER INC-2007083716

PATIENT

DRUGS (1)
  1. CHANTIX [Suspect]

REACTIONS (4)
  - HEADACHE [None]
  - INTRAOCULAR PRESSURE INCREASED [None]
  - MYOPIA [None]
  - VISION BLURRED [None]
